FAERS Safety Report 6456653-X (Version None)
Quarter: 2009Q4

REPORT INFORMATION
  Report Type: 
  Country: None (occurrence: None)
  Receive Date: 20091125
  Receipt Date: 20091112
  Transmission Date: 20100525
  Serious: Yes (Hospitalization)
  Sender: FDA-Public Use
  Company Number: FR-ELI_LILLY_AND_COMPANY-FR200911003124

PATIENT
  Sex: Male

DRUGS (2)
  1. ALIMTA [Suspect]
     Indication: PLEURAL MESOTHELIOMA
     Dosage: 500 MG/M2, APPROXIMATELY EVERY MONTH
     Route: 042
     Dates: start: 20090716
  2. CARBOPLATIN [Concomitant]
     Indication: PLEURAL MESOTHELIOMA
     Dosage: 589 MG, APPROXIMATELY EVERY MONTH
     Route: 042
     Dates: start: 20090716

REACTIONS (2)
  - COLITIS [None]
  - RECTAL HAEMORRHAGE [None]
